FAERS Safety Report 4655969-7 (Version None)
Quarter: 2005Q2

REPORT INFORMATION
  Report Type: 
  Country: None (occurrence: None)
  Receive Date: 20050506
  Receipt Date: 20050506
  Transmission Date: 20051028
  Serious: Yes (Other)
  Sender: FDA-Public Use
  Company Number: None

PATIENT
  Sex: Female

DRUGS (1)
  1. TORSEMIDE [Suspect]
     Indication: DIURETIC THERAPY
     Dosage: 1  QD  PARENTERAL
     Route: 051
     Dates: start: 20050420, end: 20050501

REACTIONS (3)
  - DRUG INEFFECTIVE [None]
  - FLUID RETENTION [None]
  - STOOL ANALYSIS ABNORMAL [None]
